FAERS Safety Report 8365452-3 (Version None)
Quarter: 2012Q2

REPORT INFORMATION
  Report Type: 
  Country: None (occurrence: None)
  Receive Date: 20120516
  Receipt Date: 20120504
  Transmission Date: 20120825
  Serious: Yes (Other)
  Sender: FDA-Public Use
  Company Number: US-PFIZER INC-2012109935

PATIENT
  Sex: Male

DRUGS (10)
  1. SYMBICORT [Concomitant]
  2. LOVAZA [Concomitant]
  3. MELATONIN [Concomitant]
  4. AMLODIPINE [Concomitant]
  5. OMEPRAZOLE [Concomitant]
  6. VITAMIN B COMPLEX CAP [Concomitant]
  7. ASCORBIC ACID [Concomitant]
  8. SPIRIVA [Concomitant]
  9. XALKORI [Suspect]
     Indication: LUNG NEOPLASM MALIGNANT
     Dosage: 250 MG, 2X/DAY
     Route: 048
     Dates: start: 20120105, end: 20120401
  10. GINGER [Concomitant]

REACTIONS (1)
  - RENAL DISORDER [None]
